FAERS Safety Report 17763598 (Version 1)
Quarter: 2020Q2

REPORT INFORMATION
  Report Type: Spontaneous
  Country: FR (occurrence: FR)
  Receive Date: 20200509
  Receipt Date: 20200509
  Transmission Date: 20200714
  Serious: Yes (Death, Other)
  Sender: FDA-Public Use
  Company Number: FR-TEVA-2020-FR-1232314

PATIENT
  Age: 89 Year
  Sex: Female
  Weight: 47.3 kg

DRUGS (10)
  1. DOLIPRANE [Concomitant]
     Active Substance: ACETAMINOPHEN
  2. LOVENOX [Concomitant]
     Active Substance: ENOXAPARIN SODIUM
  3. ELIQUIS [Concomitant]
     Active Substance: APIXABAN
  4. FENTANYL PIRAMAL 100 MICROGRAMMES/2 ML, SOLUTION INJECTABLE EN AMPOULE [Suspect]
     Active Substance: FENTANYL
     Indication: PAIN
     Dosage: 600 MICROGRAM
     Route: 041
     Dates: start: 20200403, end: 20200404
  5. FENTANYL PIRAMAL 100 MICROGRAMMES/2 ML, SOLUTION INJECTABLE EN AMPOULE [Suspect]
     Active Substance: FENTANYL
     Indication: PAIN
     Dosage: 600 MICROGRAM
     Route: 042
     Dates: start: 20200403, end: 20200404
  6. BISOCE [Concomitant]
     Active Substance: BISOPROLOL
  7. DIFFU K [Concomitant]
     Active Substance: POTASSIUM CHLORIDE
  8. FUROSEMIDE. [Concomitant]
     Active Substance: FUROSEMIDE
  9. AMIKACINE [Concomitant]
     Active Substance: AMIKACIN
  10. CALCIPARINE [Concomitant]
     Active Substance: HEPARIN CALCIUM

REACTIONS (2)
  - Wrong rate [Recovered/Resolved]
  - Respiratory disorder [Recovered/Resolved]

NARRATIVE: CASE EVENT DATE: 20200403
